FAERS Safety Report 9577489 (Version 1)
Quarter: 2013Q4

REPORT INFORMATION
  Report Type: Spontaneous
  Country: US (occurrence: US)
  Receive Date: 20131001
  Receipt Date: 20131001
  Transmission Date: 20140711
  Serious: No
  Sender: FDA-Public Use
  Company Number: US-AMGEN-USASP2013008523

PATIENT
  Age: 35 Year
  Sex: Female
  Weight: 88.44 kg

DRUGS (9)
  1. ENBREL [Suspect]
     Indication: PRODUCT USED FOR UNKNOWN INDICATION
     Dosage: 50 MG, QWK
     Route: 058
  2. CYMBALTA [Concomitant]
     Dosage: 60 MG, UNK
  3. NAPROSYN                           /00256201/ [Concomitant]
     Dosage: 375 MG, UNK
  4. ATIVAN [Concomitant]
     Dosage: 1 MG, UNK
  5. SOMA [Concomitant]
     Dosage: 350 MG, UNK
  6. LYRICA [Concomitant]
     Dosage: 100 MG, UNK
  7. WELLBUTRIN [Concomitant]
     Dosage: 100 MG, UNK
  8. TEMAZEPAM [Concomitant]
     Dosage: 30 MG, UNK
  9. NORCO [Concomitant]
     Dosage: 5-325 MG, UNK

REACTIONS (2)
  - Ear infection [Unknown]
  - Sinusitis [Unknown]
